FAERS Safety Report 4426938-7 (Version None)
Quarter: 2004Q3

REPORT INFORMATION
  Report Type: 
  Country: None (occurrence: None)
  Receive Date: 20040811
  Receipt Date: 20040730
  Transmission Date: 20050211
  Serious: Yes (Other)
  Sender: FDA-Public Use
  Company Number: HQWYE739803AUG04

PATIENT
  Age: 50 Year
  Sex: Female

DRUGS (1)
  1. PREMPRO [Suspect]

REACTIONS (1)
  - SYSTEMIC LUPUS ERYTHEMATOSUS [None]
